FAERS Safety Report 9181662 (Version 1)
Quarter: 2013Q1

REPORT INFORMATION
  Report Type: Spontaneous
  Country: US (occurrence: US)
  Receive Date: 20130322
  Receipt Date: 20130322
  Transmission Date: 20140127
  Serious: Yes (Hospitalization, Other)
  Sender: FDA-Public Use
  Company Number: US-JNJFOC-20120403251

PATIENT
  Sex: Female

DRUGS (3)
  1. TYLENOL ANALGESIC UNKNOWN [Suspect]
     Route: 048
  2. TYLENOL ANALGESIC UNKNOWN [Suspect]
     Indication: TOOTHACHE
     Route: 048
  3. TYLENOL PM [Suspect]
     Indication: PRODUCT USED FOR UNKNOWN INDICATION
     Route: 048

REACTIONS (4)
  - Acute hepatic failure [Recovering/Resolving]
  - Renal failure acute [Recovering/Resolving]
  - Thrombocytopenia [Recovering/Resolving]
  - Overdose [Unknown]
